FAERS Safety Report 5470540-5 (Version None)
Quarter: 2007Q3

REPORT INFORMATION
  Report Type: 
  Country: None (occurrence: None)
  Receive Date: 20070927
  Receipt Date: 20070927
  Transmission Date: 20080115
  Serious: Yes (Hospitalization)
  Sender: FDA-Public Use
  Company Number: None

PATIENT
  Age: 39 Year
  Sex: Male

DRUGS (3)
  1. LYMPHAZURIN [Suspect]
     Indication: SURGERY
     Dosage: X 1 DOSE SQ
     Route: 058
     Dates: start: 20070918, end: 20070918
  2. ANCEF [Concomitant]
  3. HOME HTN MEDS [Concomitant]

REACTIONS (1)
  - ANAPHYLACTIC SHOCK [None]
